FAERS Safety Report 14427221 (Version 1)
Quarter: 2018Q1

REPORT INFORMATION
  Report Type: Spontaneous
  Country: US (occurrence: US)
  Receive Date: 20180123
  Receipt Date: 20180123
  Transmission Date: 20180509
  Serious: No
  Sender: FDA-Public Use
  Company Number: US-IMPAX LABORATORIES, INC-2017-IPXL-02988

PATIENT
  Sex: Female
  Weight: 54 kg

DRUGS (1)
  1. RYTARY [Suspect]
     Active Substance: CARBIDOPA\LEVODOPA
     Indication: PARKINSON^S DISEASE
     Dosage: 48.75/195 MG, FIVE TIMES DAILY (MAXIMUM 11 CAPSULES DAILY)
     Route: 048
     Dates: start: 20160406

REACTIONS (1)
  - Hypoacusis [Not Recovered/Not Resolved]
